FAERS Safety Report 7530469-5 (Version None)
Quarter: 2011Q2

REPORT INFORMATION
  Report Type: 
  Country: None (occurrence: None)
  Receive Date: 20110607
  Receipt Date: 20110511
  Transmission Date: 20111010
  Serious: No
  Sender: FDA-Public Use
  Company Number: US-BAYER-2011-041842

PATIENT

DRUGS (1)
  1. IBUPROFEN [Suspect]
     Route: 048

REACTIONS (1)
  - HYPERSENSITIVITY [None]
